FAERS Safety Report 16746605 (Version 2)
Quarter: 2019Q3

REPORT INFORMATION
  Report Type: Spontaneous
  Country: GB (occurrence: GB)
  Receive Date: 20190827
  Receipt Date: 20190830
  Transmission Date: 20191005
  Serious: Yes (Other)
  Sender: FDA-Public Use
  Company Number: GB-JNJFOC-20190824289

PATIENT
  Sex: Male

DRUGS (1)
  1. LYRINEL [Suspect]
     Active Substance: OXYBUTYNIN
     Indication: URINARY TRACT DISORDER
     Route: 048
     Dates: start: 2017

REACTIONS (2)
  - Skin mass [Unknown]
  - Eye injury [Unknown]
